FAERS Safety Report 9832426 (Version 3)
Quarter: 2014Q1

REPORT INFORMATION
  Report Type: Spontaneous
  Country: US (occurrence: US)
  Receive Date: 20140121
  Receipt Date: 20140211
  Transmission Date: 20141002
  Serious: Yes (Hospitalization)
  Sender: FDA-Public Use
  Company Number: US-PFIZER INC-2013334867

PATIENT
  Age: 65 Year
  Sex: Male

DRUGS (2)
  1. TIKOSYN [Suspect]
     Indication: ARRHYTHMIA
     Dosage: UNK
     Dates: end: 20111017
  2. TIKOSYN [Suspect]
     Dosage: 500 UG, DAILY
     Dates: end: 201310

REACTIONS (1)
  - Skin cancer [Unknown]
